FAERS Safety Report 20782947 (Version 3)
Quarter: 2022Q3

REPORT INFORMATION
  Report Type: Spontaneous
  Country: US (occurrence: US)
  Receive Date: 20220504
  Receipt Date: 20220822
  Transmission Date: 20221027
  Serious: No
  Sender: FDA-Public Use
  Company Number: US-PFIZER INC-202200605506

PATIENT
  Age: 9 Year
  Sex: Female
  Weight: 37.19 kg

DRUGS (2)
  1. GENOTROPIN [Suspect]
     Active Substance: SOMATROPIN
     Indication: Prader-Willi syndrome
     Dosage: 1 MG, DAILY
     Route: 030
  2. PROZAC [Concomitant]
     Active Substance: FLUOXETINE HYDROCHLORIDE
     Indication: Anxiety
     Dosage: 1.2 ML, DAILY (1.2ML EVERY DAY)
     Dates: start: 202111

REACTIONS (5)
  - Device breakage [Unknown]
  - Device mechanical issue [Unknown]
  - Drug dose omission by device [Unknown]
  - Off label use [Unknown]
  - Device use issue [Unknown]

NARRATIVE: CASE EVENT DATE: 20220413
